FAERS Safety Report 23195864 (Version 2)
Quarter: 2024Q4

REPORT INFORMATION
  Report Type: Report from Study
  Country: US (occurrence: US)
  Receive Date: 20231117
  Receipt Date: 20241023
  Transmission Date: 20250115
  Serious: No
  Sender: ALEXION PHARMACEUTICALS
  Company Number: US-ALXN-202311USA000926US

PATIENT

DRUGS (4)
  1. STRENSIQ [Suspect]
     Active Substance: ASFOTASE ALFA
     Dosage: 1.75 MILLIGRAM/KILOGRAM, TIW
     Route: 065
  2. STRENSIQ [Suspect]
     Active Substance: ASFOTASE ALFA
     Dosage: 1.75 MILLIGRAM/KILOGRAM, TIW
  3. STRENSIQ [Suspect]
     Active Substance: ASFOTASE ALFA
     Dosage: 1.75 MILLIGRAM/KILOGRAM, TIW
     Route: 065
  4. STRENSIQ [Suspect]
     Active Substance: ASFOTASE ALFA
     Dosage: 1.75 MILLIGRAM/KILOGRAM, TIW

REACTIONS (11)
  - Bone density decreased [Unknown]
  - Weight increased [Unknown]
  - Dental caries [Not Recovered/Not Resolved]
  - Tooth discolouration [Not Recovered/Not Resolved]
  - Tooth loss [Unknown]
  - Blood glucose decreased [Unknown]
  - Blood phosphorus decreased [Unknown]
  - Injection site discolouration [Recovering/Resolving]
  - Injection site mass [Recovering/Resolving]
  - Injection site erythema [Recovering/Resolving]
  - Injection site atrophy [Recovering/Resolving]
